FAERS Safety Report 13307709 (Version 2)
Quarter: 2017Q1

REPORT INFORMATION
  Report Type: Spontaneous
  Country: US (occurrence: US)
  Receive Date: 20170308
  Receipt Date: 20170320
  Transmission Date: 20170428
  Serious: Yes (Other)
  Sender: FDA-Public Use
  Company Number: US-BAUSCH-BL-2017-005760

PATIENT
  Age: 78 Year
  Sex: Female

DRUGS (1)
  1. APRISO [Suspect]
     Active Substance: MESALAMINE
     Indication: COLITIS ULCERATIVE
     Route: 065

REACTIONS (5)
  - Blood potassium decreased [Unknown]
  - Adrenomegaly [Unknown]
  - Glomerular filtration rate decreased [Unknown]
  - Renal cyst [Unknown]
  - Gastritis [Unknown]

NARRATIVE: CASE EVENT DATE: 20161013
